FAERS Safety Report 6044321-8 (Version None)
Quarter: 2009Q1

REPORT INFORMATION
  Report Type: 
  Country: None (occurrence: None)
  Receive Date: 20090120
  Receipt Date: 20090108
  Transmission Date: 20090719
  Serious: Yes (Death, Hospitalization, Other)
  Sender: FDA-Public Use
  Company Number: BE-ROCHE-606261

PATIENT
  Sex: Male
  Weight: 78 kg

DRUGS (19)
  1. CAPECITABINE [Suspect]
     Dosage: DOSAGE REGIMEN: DAILY
     Route: 048
     Dates: start: 20081215, end: 20081222
  2. FENTANYL [Concomitant]
     Dosage: ROUTE: TD, STRENGTH AS 25 MICROGRAM/HOUR, THERAPY STARTED BEFORE 15 DEC 2008.
     Dates: start: 20080101
  3. ZITHROMAX [Concomitant]
     Dosage: THERAPY STARTED BEFORE 15 DEC 2008.
     Dates: start: 20080101
  4. FERRICURE [Concomitant]
     Dosage: DRUG: POLYSACHARIDE IRON / FERRICURE, THERAPY STARTED BEFORE 15 DEC 2008.
     Dates: start: 20080101
  5. SANDOZ-CALCIUM [Concomitant]
     Dosage: THERAPY STARTED BEFORE 15 DEC 2008.
     Dates: start: 20080101
  6. DAFALGAN [Concomitant]
     Dosage: DRUG REPORTED AS ACETAMINOPHEN/DAFALGAN, TAKEN IF NEEDED, THERAPY STARTED BEFORE 15 DEC 2008.
     Dates: start: 20080101
  7. SERETIDE [Concomitant]
     Dosage: THERAPY STARTED BEFORE 15 DEC 2008.
     Dates: start: 20080101
  8. MOTILIUM [Concomitant]
     Dosage: THERAPY STARTED BEFORE 15 DEC 2008.
     Dates: start: 20080101
  9. MEDICA [Concomitant]
     Dosage: DRUG: CHLOORHEXIDIN DIHYDROCHLORIDE 5MG + LIDOCAIN HYDROCHLORIDE 1 MG / MEDICA,
     Dates: start: 20080101
  10. MEDROL [Concomitant]
     Dosage: THERAPY STARTED BEFORE 15 DEC 2008.
     Dates: start: 20080101
  11. PLAVIX [Concomitant]
     Dosage: THERAPY STARTED BEFORE 15 DEC 2008.
     Dates: start: 20080101
  12. ASAFLOW [Concomitant]
     Dosage: THERAPY STARTED BEFORE 15 DEC 2008.
     Dates: start: 20080101
  13. RIVOTRIL [Concomitant]
     Dosage: THERAPY STARTED BEFORE 15 DEC 2008.
     Dates: start: 20080101
  14. REDOMEX [Concomitant]
     Dosage: THERAPY STARTED BEFORE 15 DEC 2008.
     Dates: start: 20080101
  15. BUSCOPAN [Concomitant]
     Dosage: THERAPY STARTED BEFORE 15 DEC 2008.
     Dates: start: 20080101
  16. NULYTELY [Concomitant]
     Dosage: DRUG: LAXATIVES (MOVICOL), THERAPY STARTED BEFORE 15 DEC 2008.
     Dates: start: 20080101
  17. OMEPRAZOLE [Concomitant]
     Dosage: THERAPY STARTED BEFORE 15 DEC 2008.
     Dates: start: 20080101
  18. ACETYLCYSTEINE [Concomitant]
     Dosage: THERAPY STARTED BEFORE 15 DEC 2008.
     Dates: start: 20080101
  19. LEUCOVORIN CALCIUM [Concomitant]
     Dosage: THERAPY STARTED BEFORE 15 DEC 2008.
     Dates: start: 20080101

REACTIONS (4)
  - MENTAL IMPAIRMENT [None]
  - NEUTROPENIC SEPSIS [None]
  - RASH [None]
  - THROMBOCYTOPENIA [None]
